FAERS Safety Report 9943542 (Version 1)
Quarter: 2014Q1

REPORT INFORMATION
  Report Type: Spontaneous
  Country: PR (occurrence: PR)
  Receive Date: 20140303
  Receipt Date: 20140303
  Transmission Date: 20141002
  Serious: No
  Sender: FDA-Public Use
  Company Number: PR-ABBVIE-13P-131-1050722-00

PATIENT
  Sex: Female
  Weight: 45.4 kg

DRUGS (5)
  1. HUMIRA [Suspect]
     Indication: CROHN^S DISEASE
     Route: 058
     Dates: start: 2010
  2. HUMIRA [Suspect]
     Indication: PSORIASIS
  3. IMODIUM [Concomitant]
     Indication: COLITIS ULCERATIVE
     Dosage: 2 OR 3 TIMES DAILY, 100-150MG DAILY
     Route: 048
  4. IMODIUM [Concomitant]
     Indication: CROHN^S DISEASE
  5. PROBIOTIC [Concomitant]
     Indication: CROHN^S DISEASE
     Route: 048
     Dates: start: 201301

REACTIONS (2)
  - Drug administration error [Recovered/Resolved]
  - Wrong technique in drug usage process [Recovered/Resolved]
